FAERS Safety Report 4593084-1 (Version None)
Quarter: 2005Q1

REPORT INFORMATION
  Report Type: 
  Country: None (occurrence: None)
  Receive Date: 20050301
  Receipt Date: 20050222
  Transmission Date: 20050727
  Serious: Yes (Death, Hospitalization, Other)
  Sender: FDA-Public Use
  Company Number: PHEH2005US02369

PATIENT
  Age: 41 Year
  Sex: Female

DRUGS (3)
  1. ZELNORM [Suspect]
  2. INVESTIGATIONAL DRUG [Suspect]
     Indication: IRRITABLE BOWEL SYNDROME
     Dates: start: 20050101
  3. INVESTIGATIONAL DRUG [Suspect]
     Dates: start: 20050101

REACTIONS (27)
  - ABDOMINAL PAIN [None]
  - ACIDOSIS [None]
  - ALANINE AMINOTRANSFERASE INCREASED [None]
  - ASPARTATE AMINOTRANSFERASE INCREASED [None]
  - BLADDER DISTENSION [None]
  - BLOOD ALKALINE PHOSPHATASE INCREASED [None]
  - DIARRHOEA [None]
  - ESCHERICHIA URINARY TRACT INFECTION [None]
  - GALLBLADDER NECROSIS [None]
  - GASTROINTESTINAL NECROSIS [None]
  - HEPATIC HAEMORRHAGE [None]
  - HEPATIC NECROSIS [None]
  - HYPERGLYCAEMIA [None]
  - ILEUS [None]
  - INTESTINAL ISCHAEMIA [None]
  - ISCHAEMIC HEPATITIS [None]
  - LEUKOCYTOSIS [None]
  - LIVER FUNCTION TEST ABNORMAL [None]
  - NAUSEA [None]
  - PCO2 DECREASED [None]
  - RENAL DISORDER [None]
  - RESPIRATORY FAILURE [None]
  - SHIFT TO THE LEFT [None]
  - SURGERY [None]
  - TENDERNESS [None]
  - VOMITING [None]
  - WHITE BLOOD CELL COUNT INCREASED [None]
